FAERS Safety Report 9986406 (Version 1)
Quarter: 2014Q1

REPORT INFORMATION
  Report Type: Report from Study
  Country: US (occurrence: US)
  Receive Date: 20140307
  Receipt Date: 20140307
  Transmission Date: 20141002
  Serious: No
  Sender: FDA-Public Use
  Company Number: US-ABBVIE-13P-163-1088024-00

PATIENT
  Age: 32 Year
  Sex: Male

DRUGS (4)
  1. HUMIRA [Suspect]
     Indication: CROHN^S DISEASE
     Dates: start: 2007
  2. HUMIRA [Suspect]
     Dates: start: 201206
  3. PERCOCET [Concomitant]
     Indication: PAIN
  4. UNKNOWN MEDICATION(S) [Concomitant]
     Indication: ANXIETY

REACTIONS (8)
  - Malaise [Not Recovered/Not Resolved]
  - Headache [Not Recovered/Not Resolved]
  - Dizziness [Not Recovered/Not Resolved]
  - Asthenia [Not Recovered/Not Resolved]
  - Eye pain [Not Recovered/Not Resolved]
  - Sinusitis [Not Recovered/Not Resolved]
  - Abdominal pain [Unknown]
  - Abdominal pain [Unknown]
